FAERS Safety Report 24250810 (Version 1)
Quarter: 2024Q3

REPORT INFORMATION
  Report Type: Spontaneous
  Country: US (occurrence: US)
  Receive Date: 20240826
  Receipt Date: 20240826
  Transmission Date: 20241017
  Serious: No
  Sender: MEDEXUS PHARMA
  Company Number: US-MEDEXUS PHARMA, INC.-2024MED00082

PATIENT
  Sex: Female

DRUGS (4)
  1. RASUVO [Suspect]
     Active Substance: METHOTREXATE SODIUM
     Indication: Rheumatoid arthritis
     Dosage: 30 MG, 1X/WEEK ON THURSDAYS
  2. RASUVO [Suspect]
     Active Substance: METHOTREXATE SODIUM
     Dosage: 30 MG, 1X/WEEK ON THURSDAYS
  3. FOLIC ACID [Concomitant]
     Active Substance: FOLIC ACID
     Dosage: INFUSIONS ONCE MONTHLY
  4. UNSPECIFIED INGREDIENT [Suspect]
     Active Substance: UNSPECIFIED INGREDIENT
     Dosage: UNK, 1X/MONTH

REACTIONS (5)
  - Pneumonia [Recovered/Resolved]
  - Viral infection [Recovered/Resolved]
  - Fatigue [Recovered/Resolved]
  - Productive cough [Recovered/Resolved]
  - Sputum discoloured [Recovered/Resolved]
